FAERS Safety Report 7655385-X (Version None)
Quarter: 2011Q3

REPORT INFORMATION
  Report Type: 
  Country: None (occurrence: None)
  Receive Date: 20110804
  Receipt Date: 20110715
  Transmission Date: 20111222
  Serious: Yes (Hospitalization)
  Sender: FDA-Public Use
  Company Number: US-SANOFI-AVENTIS-2011SA046020

PATIENT
  Sex: Female
  Weight: 118.18 kg

DRUGS (2)
  1. FEXOFENADINE HCL [Suspect]
     Route: 048
  2. ALLEGRA [Suspect]
     Route: 065

REACTIONS (5)
  - NON-HODGKIN'S LYMPHOMA [None]
  - URTICARIA [None]
  - LUNG NEOPLASM MALIGNANT [None]
  - NAUSEA [None]
  - RASH [None]
